FAERS Safety Report 4813353-7 (Version None)
Quarter: 2005Q4

REPORT INFORMATION
  Report Type: 
  Country: None (occurrence: None)
  Receive Date: 20051028
  Receipt Date: 20050506
  Transmission Date: 20060501
  Serious: No
  Sender: FDA-Public Use
  Company Number: US-GLAXOSMITHKLINE-A0557559A

PATIENT
  Age: 40 Year
  Sex: Female
  Weight: 94.5 kg

DRUGS (4)
  1. ADVAIR DISKUS 100/50 [Suspect]
     Indication: ASTHMA
     Dosage: 1PUFF SINGLE DOSE
     Route: 055
     Dates: start: 20050504, end: 20050504
  2. SINGULAIR [Concomitant]
     Dosage: 10MG PER DAY
     Dates: start: 20040801
  3. ALBUTEROL [Concomitant]
     Dates: start: 20040801
  4. ALLEGRA [Concomitant]
     Dosage: 180MG IN THE MORNING
     Route: 065

REACTIONS (1)
  - SWOLLEN TONGUE [None]
